FAERS Safety Report 5908747-2 (Version None)
Quarter: 2008Q4

REPORT INFORMATION
  Report Type: 
  Country: None (occurrence: None)
  Receive Date: 20081006
  Receipt Date: 20081003
  Transmission Date: 20090506
  Serious: Yes (Hospitalization)
  Sender: FDA-Public Use
  Company Number: B0540092A

PATIENT
  Age: 66 Year
  Sex: Female

DRUGS (3)
  1. MELPHALAN [Suspect]
     Indication: MULTIPLE MYELOMA
     Dosage: 10MGD PER DAY
     Route: 048
     Dates: start: 20080908, end: 20080911
  2. PREDNISONE TAB [Suspect]
     Indication: MULTIPLE MYELOMA
     Dosage: 100MGD PER DAY
     Route: 048
     Dates: start: 20080908, end: 20080911
  3. BLINDED TRIAL MEDICATION [Suspect]
     Indication: MULTIPLE MYELOMA
     Route: 048
     Dates: start: 20080908

REACTIONS (5)
  - CONSTIPATION [None]
  - DIZZINESS [None]
  - GENERAL PHYSICAL HEALTH DETERIORATION [None]
  - HYPOKALAEMIA [None]
  - NAUSEA [None]
